FAERS Safety Report 5179005-1 (Version None)
Quarter: 2006Q4

REPORT INFORMATION
  Report Type: 
  Country: None (occurrence: None)
  Receive Date: 20061215
  Receipt Date: 20061215
  Transmission Date: 20070319
  Serious: Yes (Life-Threatening, Hospitalization)
  Sender: FDA-Public Use
  Company Number: None

PATIENT
  Age: 58 Year
  Sex: Female
  Weight: 86.637 kg

DRUGS (1)
  1. VIOXX [Suspect]
     Indication: OSTEOARTHRITIS
     Dosage: QD OR BID PO
     Route: 048
     Dates: start: 19960101, end: 20000101

REACTIONS (5)
  - DRUG HYPERSENSITIVITY [None]
  - INFLAMMATION [None]
  - OVERWEIGHT [None]
  - RENAL FAILURE ACUTE [None]
  - SCAR [None]
